FAERS Safety Report 8976530 (Version 1)
Quarter: 2012Q4

REPORT INFORMATION
  Report Type: 
  Country: US (occurrence: US)
  Receive Date: 20121219
  Receipt Date: 20121219
  Transmission Date: 20130627
  Serious: No
  Sender: FDA-Public Use
  Company Number: US-AMGEN-USASP2012061853

PATIENT
  Age: 54 Year
  Sex: Female

DRUGS (13)
  1. PROLIA [Suspect]
     Indication: OSTEOPOROSIS POSTMENOPAUSAL
     Dosage: UNK
     Dates: start: 201205
  2. TRAMADOL [Concomitant]
     Dosage: UNK UNK, prn
  3. ZOLPIDEM [Concomitant]
     Dosage: UNK UNK, prn
  4. OMEPRAZOLE [Concomitant]
     Dosage: UNK UNK, prn
  5. FUROSEMIDE [Concomitant]
     Dosage: UNK
  6. OXYBUTYNIN [Concomitant]
     Indication: URINARY INCONTINENCE
     Dosage: UNK UNK, prn
  7. BUTALBITAL W/CAFFEINE/CODEINE/PARACETAMOL [Concomitant]
  8. FAMOTIDINE [Concomitant]
     Dosage: UNK
  9. METOPROLOL [Concomitant]
  10. NITROGLYCERIN [Concomitant]
     Dosage: 0.4 mg, UNK
  11. VITAMINS                           /00067501/ [Concomitant]
  12. CALCIUM CITRATE [Concomitant]
  13. VITAMIN C                          /00008001/ [Concomitant]

REACTIONS (4)
  - Gingival swelling [Not Recovered/Not Resolved]
  - Gingival pain [Not Recovered/Not Resolved]
  - Device deployment issue [Not Recovered/Not Resolved]
  - Jaw disorder [Not Recovered/Not Resolved]
